FAERS Safety Report 12075187 (Version 6)
Quarter: 2016Q2

REPORT INFORMATION
  Report Type: Report from Study
  Country: US (occurrence: US)
  Receive Date: 20160212
  Receipt Date: 20160503
  Transmission Date: 20160815
  Serious: Yes (Hospitalization)
  Sender: FDA-Public Use
  Company Number: US-ACTELION-A-NJ2016-131263

PATIENT
  Age: 75 Year
  Sex: Male

DRUGS (2)
  1. VELETRI [Suspect]
     Active Substance: EPOPROSTENOL
     Indication: PULMONARY ARTERIAL HYPERTENSION
     Dosage: 68 NG/KG, PER MIN
     Route: 042
     Dates: start: 20130103
  2. WARFARIN [Concomitant]
     Active Substance: WARFARIN

REACTIONS (19)
  - Influenza [Unknown]
  - Decreased appetite [Unknown]
  - Pneumonia [Unknown]
  - Confusional state [Unknown]
  - Nausea [Unknown]
  - Blood pressure increased [Unknown]
  - Cardiac failure [Unknown]
  - Feeling hot [Unknown]
  - Pyrexia [Unknown]
  - Weight decreased [Unknown]
  - Asthenia [Not Recovered/Not Resolved]
  - Dyspnoea [Unknown]
  - Pallor [Unknown]
  - Diarrhoea [Unknown]
  - Clostridium difficile infection [Unknown]
  - Drug dose omission [Unknown]
  - Device connection issue [Unknown]
  - Dehydration [Unknown]
  - Pleural effusion [Unknown]
